FAERS Safety Report 5881523-5 (Version None)
Quarter: 2008Q3

REPORT INFORMATION
  Report Type: 
  Country: None (occurrence: None)
  Receive Date: 20080911
  Receipt Date: 20080828
  Transmission Date: 20090109
  Serious: Yes (Hospitalization)
  Sender: FDA-Public Use
  Company Number: 238241J08USA

PATIENT
  Age: 42 Year
  Sex: Female
  Weight: 65.318 kg

DRUGS (7)
  1. REBIF [Suspect]
     Indication: MULTIPLE SCLEROSIS
     Dosage: 44 MCG, 3 IN 1 WEEKS, SUBCUTANEOUS
     Route: 058
     Dates: start: 20080516
  2. POTASSIUM (POTASSIUM /00031401/) [Concomitant]
  3. BUMETANIDE [Concomitant]
  4. NADOLOL [Concomitant]
  5. SPIRONOLACTONE [Concomitant]
  6. TRAMADOL HCL [Concomitant]
  7. TYLENOL WITH CODEINE (PANADEINE CO) [Concomitant]

REACTIONS (3)
  - GOUT [None]
  - HYPOAESTHESIA [None]
  - PAIN IN EXTREMITY [None]
